FAERS Safety Report 6270910-1 (Version None)
Quarter: 2009Q3

REPORT INFORMATION
  Report Type: 
  Country: None (occurrence: None)
  Receive Date: 20090716
  Receipt Date: 20090708
  Transmission Date: 20100115
  Serious: Yes (Hospitalization)
  Sender: FDA-Public Use
  Company Number: PHHO2009US08588

PATIENT
  Sex: Male
  Weight: 125.17 kg

DRUGS (8)
  1. RAD 666 RAD+TAB [Suspect]
     Indication: GLIOBLASTOMA MULTIFORME
     Dosage: 10 MG/DAY
     Route: 048
     Dates: start: 20090706, end: 20090706
  2. AVASTIN COMP-AVA+ [Suspect]
     Indication: GLIOBLASTOMA MULTIFORME
     Dosage: 1300 MG/EVERY 2 WEEKS
     Dates: start: 20090427, end: 20090608
  3. AVASTIN COMP-AVA+ [Suspect]
     Dosage: 1250 MG, UNK
     Route: 042
  4. TEMOZOLOMIDE COMP-TEMO+ [Suspect]
     Indication: GLIOBLASTOMA MULTIFORME
     Dosage: 195 MG/DAY
     Dates: start: 20090427, end: 20090709
  5. DIPHENHYDRAMINE HCL [Concomitant]
  6. KEPPRA [Concomitant]
  7. HYDROCHLOROTHIAZIDE [Concomitant]
  8. VICODIN [Concomitant]

REACTIONS (7)
  - CHILLS [None]
  - HYPOTENSION [None]
  - LUNG INFILTRATION [None]
  - OXYGEN SATURATION DECREASED [None]
  - PNEUMONIA [None]
  - PYREXIA [None]
  - TREMOR [None]
